FAERS Safety Report 7038941-1 (Version None)
Quarter: 2010Q4

REPORT INFORMATION
  Report Type: 
  Country: None (occurrence: None)
  Receive Date: 20101012
  Receipt Date: 20101005
  Transmission Date: 20110411
  Serious: Yes (Other)
  Sender: FDA-Public Use
  Company Number: US-JNJFOC-20100908254

PATIENT
  Age: 15 Year
  Sex: Female

DRUGS (1)
  1. PANCREAZE [Suspect]
     Indication: CYSTIC FIBROSIS
     Route: 048

REACTIONS (4)
  - HIATUS HERNIA [None]
  - IMPAIRED GASTRIC EMPTYING [None]
  - NUTRITIONAL SUPPORT [None]
  - WEIGHT INCREASED [None]
